FAERS Safety Report 11515117 (Version 1)
Quarter: 2015Q3

REPORT INFORMATION
  Report Type: Report from Study
  Country: US (occurrence: US)
  Receive Date: 20150916
  Receipt Date: 20150916
  Transmission Date: 20151125
  Serious: Yes (Other)
  Sender: FDA-Public Use
  Company Number: PHEH2015US014605

PATIENT
  Sex: Male
  Weight: 127 kg

DRUGS (1)
  1. GILENYA [Suspect]
     Active Substance: FINGOLIMOD HYDROCHLORIDE
     Indication: MULTIPLE SCLEROSIS
     Dosage: 0.5 MG, QD
     Route: 048
     Dates: end: 201501

REACTIONS (25)
  - Oedema peripheral [Unknown]
  - Central nervous system lesion [Unknown]
  - Peroneal nerve palsy [Unknown]
  - Sleep apnoea syndrome [Unknown]
  - Panic attack [Unknown]
  - Demyelination [Unknown]
  - Pollakiuria [Unknown]
  - Foot deformity [Unknown]
  - Asthenia [Unknown]
  - Pupillary disorder [Unknown]
  - Paraesthesia [Recovered/Resolved]
  - Gait spastic [Unknown]
  - Hypertonia [Unknown]
  - Obesity [Unknown]
  - Hypoaesthesia [Recovered/Resolved]
  - Affect lability [Unknown]
  - Sensory loss [Unknown]
  - Gait disturbance [Unknown]
  - Insomnia [Unknown]
  - Muscle spasms [Unknown]
  - Coordination abnormal [Unknown]
  - Anxiety [Unknown]
  - Muscular weakness [Unknown]
  - Dry eye [Unknown]
  - Ataxia [Unknown]
